FAERS Safety Report 9524639 (Version 3)
Quarter: 2013Q4

REPORT INFORMATION
  Report Type: Spontaneous
  Country: US (occurrence: US)
  Receive Date: 20130916
  Receipt Date: 20131104
  Transmission Date: 20140711
  Serious: Yes (Other)
  Sender: FDA-Public Use
  Company Number: US-PFIZER INC-2013265593

PATIENT
  Age: 60 Year
  Sex: Female
  Weight: 59.9 kg

DRUGS (5)
  1. XANAX [Suspect]
     Indication: ANXIETY
     Dosage: 0.5 MG, DAILY
  2. XANAX [Suspect]
     Dosage: 2 MG, 1X/DAY
  3. XANAX XR [Suspect]
     Indication: ANXIETY
     Dosage: 1MG IN THE MORNING AND 0.5IN THE EVENING, 2X/DAY
     Dates: start: 201309
  4. BYSTOLIC [Concomitant]
     Indication: HYPERTENSION
     Dosage: 0.5 MG, DAILY
  5. LOSARTAN [Concomitant]
     Indication: HYPERTENSION
     Dosage: UNK

REACTIONS (4)
  - Hypertension [Unknown]
  - Panic attack [Unknown]
  - Drug effect incomplete [Unknown]
  - Drug ineffective [Unknown]
